FAERS Safety Report 8953736 (Version 1)
Quarter: 2012Q4

REPORT INFORMATION
  Report Type: Report from Study
  Country: US (occurrence: US)
  Receive Date: 20121206
  Receipt Date: 20121206
  Transmission Date: 20130627
  Serious: Yes (Other)
  Sender: FDA-Public Use
  Company Number: US-US-EMD SERONO, INC.-7172531

PATIENT
  Sex: Male

DRUGS (3)
  1. REBIF [Suspect]
     Indication: MULTIPLE SCLEROSIS
     Route: 058
     Dates: start: 20061009, end: 201107
  2. REBIF [Suspect]
     Route: 058
     Dates: start: 201109
  3. OXYCODONE [Concomitant]
     Indication: TENSION HEADACHE

REACTIONS (4)
  - Arthralgia [Unknown]
  - Dysstasia [Unknown]
  - Blood potassium decreased [Recovered/Resolved]
  - Chills [Recovering/Resolving]
